FAERS Safety Report 21827809 (Version 7)
Quarter: 2023Q4

REPORT INFORMATION
  Report Type: Report from Study
  Country: CA (occurrence: CA)
  Receive Date: 20230106
  Receipt Date: 20231224
  Transmission Date: 20240109
  Serious: Yes (Other)
  Sender: FDA-Public Use
  Company Number: CA-JNJFOC-20230107073

PATIENT
  Age: 1 Decade
  Sex: Male

DRUGS (3)
  1. REMICADE [Suspect]
     Active Substance: INFLIXIMAB
     Indication: Colitis ulcerative
     Dosage: REQUEST FOR IV RELOAD AT CURRENT DOSE (RATIONALE NOT PROVIDED WHY RELOAD WAS REQUIRED)
     Route: 042
     Dates: start: 20220427
  2. REMICADE [Suspect]
     Active Substance: INFLIXIMAB
     Dosage: TDM LOW AT 8  HAS BEEN TRENDING DOWN AS PER BSA (BODY SURFACE AREA) 0.55X X 400 = 220  ROUND UP TO
     Route: 042
  3. REMICADE [Suspect]
     Active Substance: INFLIXIMAB
     Dosage: RELOAD AT 0,1,4 AND THEN EVERY 4 WEEKS
     Route: 042

REACTIONS (2)
  - Clostridium difficile infection [Unknown]
  - Drug level decreased [Unknown]
